FAERS Safety Report 7430342-7 (Version None)
Quarter: 2011Q2

REPORT INFORMATION
  Report Type: 
  Country: None (occurrence: None)
  Receive Date: 20110421
  Receipt Date: 20110203
  Transmission Date: 20111010
  Serious: No
  Sender: FDA-Public Use
  Company Number: US-ASTRAZENECA-2011SE06041

PATIENT
  Age: 92 Year
  Sex: Male

DRUGS (5)
  1. ZOCOR [Concomitant]
  2. ASPIRIN [Concomitant]
  3. TOPROL-XL [Suspect]
     Indication: MYOCARDIAL INFARCTION
     Route: 048
  4. PROTONICS [Concomitant]
  5. VIT D [Concomitant]

REACTIONS (1)
  - DEAFNESS [None]
